FAERS Safety Report 7717456-9 (Version None)
Quarter: 2011Q3

REPORT INFORMATION
  Report Type: 
  Country: None (occurrence: None)
  Receive Date: 20110830
  Receipt Date: 20110826
  Transmission Date: 20111222
  Serious: No
  Sender: FDA-Public Use
  Company Number: US-TEVA-298309USA

PATIENT
  Sex: Female
  Weight: 77.18 kg

DRUGS (1)
  1. COPAXONE [Suspect]
     Indication: MULTIPLE SCLEROSIS
     Route: 058
     Dates: start: 20110502, end: 20110614

REACTIONS (2)
  - ALOPECIA [None]
  - TOOTH DISCOLOURATION [None]
